FAERS Safety Report 5474899-4 (Version None)
Quarter: 2007Q3

REPORT INFORMATION
  Report Type: 
  Country: None (occurrence: None)
  Receive Date: 20070831
  Receipt Date: 20070403
  Transmission Date: 20080115
  Serious: No
  Sender: FDA-Public Use
  Company Number: 239448

PATIENT
  Sex: Male

DRUGS (4)
  1. LUCENTIS [Suspect]
     Indication: MACULAR DEGENERATION
     Dosage: 0.3 MG
     Dates: start: 20051205
  2. LOPID [Concomitant]
  3. VITAMINS (VITAMINS NOS) [Concomitant]
  4. TYLENOL (CAPLET) [Concomitant]

REACTIONS (1)
  - HYPERTENSION [None]
